FAERS Safety Report 9440325 (Version 1)
Quarter: 2013Q3

REPORT INFORMATION
  Report Type: Spontaneous
  Country: DE (occurrence: DE)
  Receive Date: 20130805
  Receipt Date: 20130805
  Transmission Date: 20140515
  Serious: Yes (Other)
  Sender: FDA-Public Use
  Company Number: DE-PFIZER INC-2013221970

PATIENT
  Age: 38 Year
  Sex: Female

DRUGS (1)
  1. LEIOS [Suspect]
     Dosage: UNK
     Dates: start: 2011

REACTIONS (1)
  - Haemorrhage [Unknown]
